FAERS Safety Report 8230387-3 (Version None)
Quarter: 2012Q1

REPORT INFORMATION
  Report Type: 
  Country: None (occurrence: None)
  Receive Date: 20120320
  Receipt Date: 20120309
  Transmission Date: 20120608
  Serious: Yes (Other)
  Sender: FDA-Public Use
  Company Number: AUR-APL-2012-01435

PATIENT
  Age: 26 Year
  Sex: Female

DRUGS (5)
  1. PAROXETINE HCL [Suspect]
     Indication: PSYCHOTIC DISORDER
     Dosage: (20 MG, 1 D)
  2. CITALOPRAM HYDROBROMIDE [Suspect]
     Indication: ADJUSTMENT DISORDER
  3. VENLAFAXINE [Suspect]
     Indication: ADJUSTMENT DISORDER
     Dosage: (37.5 MG, 1 D)
  4. SERTRALINE HYDROCHLORIDE [Suspect]
     Indication: ADJUSTMENT DISORDER
  5. FLUOXETINE [Suspect]
     Indication: ADJUSTMENT DISORDER

REACTIONS (23)
  - PSYCHOTIC DISORDER [None]
  - MARITAL PROBLEM [None]
  - ANGER [None]
  - PANIC ATTACK [None]
  - INSOMNIA [None]
  - ADJUSTMENT DISORDER [None]
  - VIOLENCE-RELATED SYMPTOM [None]
  - SUICIDAL IDEATION [None]
  - SELF ESTEEM DECREASED [None]
  - OVERDOSE [None]
  - STRESS [None]
  - PSYCHOMOTOR HYPERACTIVITY [None]
  - DELIRIUM [None]
  - RESTLESSNESS [None]
  - FATIGUE [None]
  - AKINESIA [None]
  - MENTAL IMPAIRMENT [None]
  - SUICIDE ATTEMPT [None]
  - CARBON MONOXIDE POISONING [None]
  - SUICIDAL BEHAVIOUR [None]
  - WITHDRAWAL SYNDROME [None]
  - HALLUCINATION [None]
  - PHYSICAL ASSAULT [None]
